FAERS Safety Report 12286013 (Version 1)
Quarter: 2016Q2

REPORT INFORMATION
  Report Type: Spontaneous
  Country: US (occurrence: US)
  Receive Date: 20160420
  Receipt Date: 20160420
  Transmission Date: 20160815
  Serious: Yes (Hospitalization)
  Sender: FDA-Public Use
  Company Number: US-ALKERMES INC.-ALK-2016-000949

PATIENT

DRUGS (1)
  1. VIVITROL [Suspect]
     Active Substance: NALTREXONE
     Indication: DRUG DEPENDENCE
     Dosage: UNK UNK, QMO
     Dates: end: 201407

REACTIONS (3)
  - Neonatal complications of substance abuse [Unknown]
  - Foetal exposure during pregnancy [Recovered/Resolved]
  - Foster care [Not Recovered/Not Resolved]

NARRATIVE: CASE EVENT DATE: 20150219
